FAERS Safety Report 6893159-8 (Version None)
Quarter: 2010Q3

REPORT INFORMATION
  Report Type: 
  Country: None (occurrence: None)
  Receive Date: 20100731
  Receipt Date: 20090612
  Transmission Date: 20110219
  Serious: No
  Sender: FDA-Public Use
  Company Number: US-PFIZER INC-2009213680

PATIENT
  Sex: Female
  Weight: 63.492 kg

DRUGS (6)
  1. AMLODIPINE BESYLATE [Suspect]
     Dosage: 5 MG, 1X/DAY
     Route: 048
  2. METOPROLOL [Concomitant]
     Dosage: UNK
  3. WARFARIN SODIUM [Concomitant]
     Dosage: UNK
  4. LANOXIN [Concomitant]
     Dosage: UNK
  5. FUROSEMIDE [Concomitant]
     Dosage: UNK
  6. COZAAR [Concomitant]
     Dosage: UNK

REACTIONS (2)
  - PRESYNCOPE [None]
  - TACHYCARDIA [None]
